FAERS Safety Report 5795804-7 (Version None)
Quarter: 2008Q3

REPORT INFORMATION
  Report Type: 
  Country: None (occurrence: None)
  Receive Date: 20080701
  Receipt Date: 20080505
  Transmission Date: 20090109
  Serious: No
  Sender: FDA-Public Use
  Company Number: US-BAYER-200822599NA

PATIENT
  Sex: Male
  Weight: 53 kg

DRUGS (4)
  1. ULTRAVIST (PHARMACY BULK) [Suspect]
     Indication: COMPUTERISED TOMOGRAM THORAX
     Route: 042
     Dates: start: 20080502, end: 20080502
  2. ALTACE [Concomitant]
  3. ASPIRIN [Concomitant]
  4. CHOLESTEROL PILL [Concomitant]

REACTIONS (1)
  - PRURITUS [None]
